FAERS Safety Report 6639153-3 (Version None)
Quarter: 2010Q1

REPORT INFORMATION
  Report Type: 
  Country: None (occurrence: None)
  Receive Date: 20100312
  Receipt Date: 20100304
  Transmission Date: 20100710
  Serious: Yes (Hospitalization)
  Sender: FDA-Public Use
  Company Number: 96330

PATIENT
  Age: 34 Year
  Sex: Male

DRUGS (2)
  1. CISPLATIN [Suspect]
     Indication: TESTIS CANCER
     Dosage: 20MG/M2/DAY FOR 5 DAYS
  2. ETOPOSIDE [Suspect]
     Indication: TESTIS CANCER
     Dosage: 100MG/M2/DAY FOR 5 DAYS

REACTIONS (3)
  - ARTERIAL THROMBOSIS [None]
  - GAIT DISTURBANCE [None]
  - MUSCLE SPASMS [None]
